FAERS Safety Report 21017248 (Version 1)
Quarter: 2022Q2

REPORT INFORMATION
  Report Type: Spontaneous
  Country: US (occurrence: None)
  Receive Date: 20220627
  Receipt Date: 20220627
  Transmission Date: 20220721
  Serious: No
  Sender: FDA-Public Use
  Company Number: None

PATIENT
  Age: 68 Year
  Sex: Female
  Weight: 78.75 kg

DRUGS (7)
  1. IBANDRONATE SODIUM [Suspect]
     Active Substance: IBANDRONATE SODIUM
     Indication: Osteopenia
     Dosage: OTHER QUANTITY : 1 TABLET(S);?OTHER FREQUENCY : 1 PER MONTH;?
     Route: 048
     Dates: start: 20220203, end: 20220505
  2. LOSARTAN POTASSIUM [Concomitant]
  3. ROSUVASTATIN CALCIUM [Concomitant]
  4. CALCIUM [Concomitant]
  5. VITAMIN D3 [Concomitant]
     Active Substance: CHOLECALCIFEROL
  6. GLUCOSAMINE [Concomitant]
  7. ASPIRIN [Concomitant]
     Active Substance: ASPIRIN

REACTIONS (1)
  - Pain in jaw [None]

NARRATIVE: CASE EVENT DATE: 20220320
